FAERS Safety Report 7987527-0 (Version None)
Quarter: 2011Q4

REPORT INFORMATION
  Report Type: 
  Country: None (occurrence: None)
  Receive Date: 20111216
  Receipt Date: 20111206
  Transmission Date: 20120403
  Serious: Yes (Hospitalization)
  Sender: FDA-Public Use
  Company Number: PHHO2011GB14124

PATIENT
  Sex: Male
  Weight: 82 kg

DRUGS (2)
  1. BUMETANIDE [Suspect]
  2. ALISKIREN [Suspect]
     Indication: CARDIAC FAILURE
     Dosage: 300 MG, BID
     Dates: start: 20101206

REACTIONS (1)
  - GOUT [None]
